FAERS Safety Report 7406726-X (Version None)
Quarter: 2011Q2

REPORT INFORMATION
  Report Type: 
  Country: None (occurrence: None)
  Receive Date: 20110411
  Receipt Date: 20110407
  Transmission Date: 20111010
  Serious: Yes (Life-Threatening, Hospitalization, Disabling, Other)
  Sender: FDA-Public Use
  Company Number: CA-ASTRAZENECA-2011SE11836

PATIENT
  Age: 24427 Day
  Sex: Male

DRUGS (7)
  1. WARFARIN [Concomitant]
     Dates: start: 20080501
  2. ASPIRIN [Concomitant]
     Route: 048
  3. CRESTOR [Suspect]
     Indication: HYPERCHOLESTEROLAEMIA
     Route: 048
     Dates: start: 20101102, end: 20110101
  4. BLOOD PRESSURE MEDICATION [Concomitant]
  5. LIPITOR [Concomitant]
     Dates: start: 19980101
  6. ACCUPRIL [Concomitant]
  7. METOPROLOL TARTRATE [Concomitant]

REACTIONS (4)
  - RENAL TUBULAR NECROSIS [None]
  - RENAL FAILURE ACUTE [None]
  - BLOOD CREATININE INCREASED [None]
  - STAPHYLOCOCCAL INFECTION [None]
